FAERS Safety Report 23767397 (Version 5)
Quarter: 2025Q1

REPORT INFORMATION
  Report Type: Report from Study
  Country: US (occurrence: US)
  Receive Date: 20240422
  Receipt Date: 20250108
  Transmission Date: 20250409
  Serious: Yes (Hospitalization, Other)
  Sender: ABBVIE
  Company Number: US-ABBVIE-5729241

PATIENT
  Age: 41 Year
  Sex: Female

DRUGS (1)
  1. SKYRIZI [Suspect]
     Active Substance: RISANKIZUMAB-RZAA
     Indication: Psoriasis
     Route: 058
     Dates: start: 20221221, end: 202403

REACTIONS (13)
  - Hepatic cirrhosis [Recovered/Resolved]
  - Rash macular [Not Recovered/Not Resolved]
  - Unevaluable event [Recovering/Resolving]
  - Liver disorder [Recovering/Resolving]
  - Immune system disorder [Unknown]
  - Hepatic encephalopathy [Recovered/Resolved]
  - Polymyositis [Recovered/Resolved]
  - Dry skin [Not Recovered/Not Resolved]
  - Weight decreased [Recovering/Resolving]
  - Movement disorder [Recovered/Resolved]
  - Ear dryness [Not Recovered/Not Resolved]
  - Weight increased [Recovering/Resolving]
  - Post procedural oedema [Recovering/Resolving]

NARRATIVE: CASE EVENT DATE: 20240301
